FAERS Safety Report 17087750 (Version 1)
Quarter: 2019Q4

REPORT INFORMATION
  Report Type: Spontaneous
  Country: US (occurrence: US)
  Receive Date: 20191128
  Receipt Date: 20191128
  Transmission Date: 20200122
  Serious: No
  Sender: FDA-Public Use
  Company Number: US-UCBSA-2018032711

PATIENT
  Age: 62 Year
  Sex: Male

DRUGS (2)
  1. CIMZIA [Suspect]
     Active Substance: CERTOLIZUMAB PEGOL
     Indication: PSORIATIC ARTHROPATHY
     Dosage: UNKNOWN DOSE (7 YEARS)
     Dates: end: 201807
  2. CIMZIA [Suspect]
     Active Substance: CERTOLIZUMAB PEGOL
     Indication: CROHN^S DISEASE

REACTIONS (2)
  - Product dose omission [Unknown]
  - Drug ineffective [Unknown]

NARRATIVE: CASE EVENT DATE: 20180205
